FAERS Safety Report 15441318 (Version 1)
Quarter: 2018Q3

REPORT INFORMATION
  Report Type: Report from Study
  Country: None (occurrence: US)
  Receive Date: 20180928
  Receipt Date: 20180928
  Transmission Date: 20181010
  Serious: Yes (Other)
  Sender: FDA-Public Use
  Company Number: US-ABBVIE-18K-163-2497079-00

PATIENT
  Sex: Female

DRUGS (2)
  1. VENCLEXTA [Suspect]
     Active Substance: VENETOCLAX
     Indication: REMISSION NOT ACHIEVED
     Dosage: DOSE INCREASED
     Route: 048
     Dates: start: 2018
  2. VENCLEXTA [Suspect]
     Active Substance: VENETOCLAX
     Indication: PLASMA CELL MYELOMA
     Route: 048
     Dates: start: 20180727, end: 2018

REACTIONS (3)
  - Blood magnesium decreased [Unknown]
  - Haemoglobin decreased [Unknown]
  - Monoclonal immunoglobulin present [Unknown]

NARRATIVE: CASE EVENT DATE: 2018
